FAERS Safety Report 13931916 (Version 1)
Quarter: 2017Q3

REPORT INFORMATION
  Report Type: Spontaneous
  Country: CA (occurrence: CA)
  Receive Date: 20170904
  Receipt Date: 20170904
  Transmission Date: 20171127
  Serious: Yes (Disabling)
  Sender: FDA-Public Use
  Company Number: CA-TEVA-801534ACC

PATIENT
  Age: 36 Year
  Sex: Female
  Weight: 64 kg

DRUGS (2)
  1. LEVOTHYROXINE. [Concomitant]
     Active Substance: LEVOTHYROXINE
  2. ACT IMATINIB [Suspect]
     Active Substance: IMATINIB
     Indication: CHRONIC MYELOID LEUKAEMIA
     Dosage: 300 MILLIGRAM DAILY;

REACTIONS (3)
  - Skin hypertrophy [Unknown]
  - Rash [Unknown]
  - Pigmentation disorder [Unknown]
